FAERS Safety Report 6825106-9 (Version None)
Quarter: 2010Q3

REPORT INFORMATION
  Report Type: 
  Country: None (occurrence: None)
  Receive Date: 20100708
  Receipt Date: 20070112
  Transmission Date: 20110219
  Serious: No
  Sender: FDA-Public Use
  Company Number: US-PFIZER INC-2007002807

PATIENT
  Sex: Female
  Weight: 55.34 kg

DRUGS (5)
  1. CHANTIX [Suspect]
     Dates: start: 20061230, end: 20070103
  2. SUDAFED 12 HOUR [Suspect]
     Indication: SINUSITIS
     Dates: start: 20070101, end: 20070101
  3. ANTIBIOTICS [Suspect]
     Indication: SINUSITIS
     Dates: start: 20070101, end: 20070101
  4. ALL OTHER THERAPEUTIC PRODUCTS [Concomitant]
     Route: 055
  5. FOSAMAX [Concomitant]
     Dates: start: 20061101

REACTIONS (8)
  - FEELING ABNORMAL [None]
  - HEART RATE INCREASED [None]
  - HYPERSENSITIVITY [None]
  - NASAL CONGESTION [None]
  - NAUSEA [None]
  - RHINORRHOEA [None]
  - SINUSITIS [None]
  - SNEEZING [None]
